FAERS Safety Report 23720139 (Version 5)
Quarter: 2024Q2

REPORT INFORMATION
  Report Type: Spontaneous
  Country: US (occurrence: US)
  Receive Date: 20240408
  Receipt Date: 20240625
  Transmission Date: 20240716
  Serious: Yes (Hospitalization, Other)
  Sender: FDA-Public Use
  Company Number: US-PFIZER INC-202400080061

PATIENT
  Age: 77 Year
  Sex: Female
  Weight: 58.97 kg

DRUGS (4)
  1. BRAFTOVI [Suspect]
     Active Substance: ENCORAFENIB
     Indication: Malignant melanoma
     Dosage: 75 MG
  2. BRAFTOVI [Suspect]
     Active Substance: ENCORAFENIB
     Dosage: MEDICATIONS IN THE MORNING, TAKES 6 OF BRAFTOVI
     Dates: start: 20240318
  3. MEKTOVI [Suspect]
     Active Substance: BINIMETINIB
     Indication: Malignant melanoma
     Dosage: 15 MG
  4. MEKTOVI [Suspect]
     Active Substance: BINIMETINIB
     Dosage: MEKTOVI AT ONE TIME AT 9-10AM AND 12 HOURS LATER TAKES ANOTHER 3 MEKTOVI
     Dates: start: 20240318

REACTIONS (9)
  - Near death experience [Unknown]
  - Loss of consciousness [Unknown]
  - Fatigue [Not Recovered/Not Resolved]
  - Mental fatigue [Unknown]
  - Flat affect [Unknown]
  - Mass [Unknown]
  - Asthenia [Not Recovered/Not Resolved]
  - Movement disorder [Not Recovered/Not Resolved]
  - Pain [Unknown]

NARRATIVE: CASE EVENT DATE: 20231201
